FAERS Safety Report 18543568 (Version 2)
Quarter: 2020Q4

REPORT INFORMATION
  Report Type: Report from Study
  Country: None (occurrence: US)
  Receive Date: 20201124
  Receipt Date: 20201223
  Transmission Date: 20210114
  Serious: Yes (Hospitalization)
  Sender: FDA-Public Use
  Company Number: US-ABBVIE-20K-163-3659880-00

PATIENT
  Sex: Female

DRUGS (2)
  1. ORIAHNN [Suspect]
     Active Substance: ELAGOLIX SODIUM\ESTRADIOL\NORETHINDRONE
     Indication: PRODUCT USED FOR UNKNOWN INDICATION
     Dosage: 1 IN 1 DAY PM
     Route: 048
     Dates: start: 20201018, end: 2020
  2. ORIAHNN [Suspect]
     Active Substance: ELAGOLIX SODIUM\ESTRADIOL\NORETHINDRONE
     Indication: PRODUCT USED FOR UNKNOWN INDICATION
     Dosage: 1 IN 1 DAY AM
     Route: 048
     Dates: start: 20201018, end: 2020

REACTIONS (9)
  - Amenorrhoea [Not Recovered/Not Resolved]
  - Dehydration [Recovered/Resolved]
  - Adnexa uteri pain [Recovering/Resolving]
  - Vomiting [Recovered/Resolved]
  - Drug ineffective [Recovering/Resolving]
  - Pain [Recovering/Resolving]
  - Uterine leiomyoma [Recovering/Resolving]
  - Muscle spasms [Recovering/Resolving]
  - Malaise [Recovered/Resolved]

NARRATIVE: CASE EVENT DATE: 2020
